FAERS Safety Report 13400967 (Version 2)
Quarter: 2017Q2

REPORT INFORMATION
  Report Type: Spontaneous
  Country: US (occurrence: US)
  Receive Date: 20170404
  Receipt Date: 20170607
  Transmission Date: 20170830
  Serious: No
  Sender: FDA-Public Use
  Company Number: US-GLAXOSMITHKLINE-US2017046499

PATIENT
  Sex: Female

DRUGS (1)
  1. TANZEUM [Suspect]
     Active Substance: ALBIGLUTIDE
     Indication: DIABETES MELLITUS
     Dosage: 50 MG, CYC
     Route: 042

REACTIONS (4)
  - Drug dose omission [Unknown]
  - Injection site pruritus [Unknown]
  - Injection site erythema [Unknown]
  - Product quality issue [Unknown]
